FAERS Safety Report 19050291 (Version 2)
Quarter: 2021Q3

REPORT INFORMATION
  Report Type: Spontaneous
  Country: DE (occurrence: DE)
  Receive Date: 20210324
  Receipt Date: 20210802
  Transmission Date: 20211014
  Serious: Yes (Other)
  Sender: FDA-Public Use
  Company Number: DE-ESPERIONTHERAPEUTICS-2021DEU00566

PATIENT
  Age: 71 Year
  Sex: Male
  Weight: 97 kg

DRUGS (8)
  1. OPIPRAMOL [Concomitant]
     Active Substance: OPIPRAMOL
     Indication: PRODUCT USED FOR UNKNOWN INDICATION
     Dosage: UNK
     Route: 065
  2. PHENPROCOUMON [Concomitant]
     Active Substance: PHENPROCOUMON
     Indication: EMBOLISM ARTERIAL
     Dosage: UNK
     Route: 065
  3. NILEMDO [Suspect]
     Active Substance: BEMPEDOIC ACID
     Indication: HYPERCHOLESTEROLAEMIA
     Dosage: 180 MG, QD
     Route: 048
     Dates: start: 20210223, end: 20210303
  4. BISOPROLOL [Concomitant]
     Active Substance: BISOPROLOL
     Indication: PRODUCT USED FOR UNKNOWN INDICATION
     Dosage: UNK
     Route: 065
  5. REPATHA [Concomitant]
     Active Substance: EVOLOCUMAB
     Indication: HYPERCHOLESTEROLAEMIA
     Dosage: 140 MG
     Route: 065
     Dates: start: 201911, end: 20210303
  6. RAMIPRIL. [Concomitant]
     Active Substance: RAMIPRIL
     Indication: PRODUCT USED FOR UNKNOWN INDICATION
     Dosage: UNK
     Route: 065
  7. BISOPROLOL [Concomitant]
     Active Substance: BISOPROLOL
     Dosage: UNK
  8. ALLOPURINOL. [Concomitant]
     Active Substance: ALLOPURINOL
     Indication: PRODUCT USED FOR UNKNOWN INDICATION
     Dosage: UNK
     Route: 065

REACTIONS (2)
  - Muscle rupture [Unknown]
  - Injury [Unknown]

NARRATIVE: CASE EVENT DATE: 20210303
